FAERS Safety Report 11294844 (Version 1)
Quarter: 2015Q3

REPORT INFORMATION
  Report Type: Spontaneous
  Country: US (occurrence: None)
  Receive Date: 20150722
  Receipt Date: 20150722
  Transmission Date: 20151125
  Serious: No
  Sender: FDA-Public Use
  Company Number: None

PATIENT
  Age: 76 Year
  Sex: Male
  Weight: 102.06 kg

DRUGS (15)
  1. ONE A DAY VITAMINS [Concomitant]
  2. RANITDINE [Concomitant]
  3. ACETAMINOPHEN P M [Concomitant]
  4. CIPROFLOXACIN. [Suspect]
     Active Substance: CIPROFLOXACIN
     Route: 048
     Dates: start: 20150715, end: 20150715
  5. LOSARTAN. [Concomitant]
     Active Substance: LOSARTAN
  6. HUMALOG 50/50 [Concomitant]
  7. ATORVASTATIN [Concomitant]
     Active Substance: ATORVASTATIN
  8. CARVEDILOL. [Concomitant]
     Active Substance: CARVEDILOL
  9. CONDROITIN [Concomitant]
  10. ASPIRIN. [Concomitant]
     Active Substance: ASPIRIN
  11. IRON [Concomitant]
     Active Substance: IRON
  12. ACTOS/METFORMIN [Concomitant]
  13. SAW PALMETTO [Concomitant]
     Active Substance: SAW PALMETTO
  14. CALCIUM [Concomitant]
     Active Substance: CALCIUM
  15. GLUCOSAMINE [Concomitant]
     Active Substance: GLUCOSAMINE

REACTIONS (6)
  - Head injury [None]
  - Musculoskeletal chest pain [None]
  - Contusion [None]
  - Loss of consciousness [None]
  - Muscle rupture [None]
  - Amnesia [None]

NARRATIVE: CASE EVENT DATE: 20150715
